FAERS Safety Report 16338539 (Version 2)
Quarter: 2019Q3

REPORT INFORMATION
  Report Type: Spontaneous
  Country: US (occurrence: US)
  Receive Date: 20190521
  Receipt Date: 20190711
  Transmission Date: 20191004
  Serious: Yes (Hospitalization)
  Sender: FDA-Public Use
  Company Number: US-ASTRAZENECA-2019SE72709

PATIENT
  Age: 735 Month
  Sex: Female

DRUGS (2)
  1. SYMBICORT [Suspect]
     Active Substance: BUDESONIDE\FORMOTEROL FUMARATE DIHYDRATE
     Indication: CHRONIC OBSTRUCTIVE PULMONARY DISEASE
     Dosage: TWO PUFFS TWICE A DAY
     Route: 055
     Dates: start: 20190504, end: 201905
  2. BEVESPI AEROSPHERE [Suspect]
     Active Substance: FORMOTEROL FUMARATE\GLYCOPYRROLATE
     Indication: CHRONIC OBSTRUCTIVE PULMONARY DISEASE
     Dosage: 9/4.8 MCG,TWO PUFFS TWICE A DAY
     Route: 055

REACTIONS (5)
  - Candida infection [Not Recovered/Not Resolved]
  - Device issue [Unknown]
  - Chronic obstructive pulmonary disease [Recovered/Resolved]
  - Wrong technique in product usage process [Unknown]
  - Product dose omission [Recovered/Resolved]

NARRATIVE: CASE EVENT DATE: 201905
